FAERS Safety Report 19449589 (Version 1)
Quarter: 2021Q2

REPORT INFORMATION
  Report Type: Spontaneous
  Country: US (occurrence: US)
  Receive Date: 20210622
  Receipt Date: 20210622
  Transmission Date: 20210717
  Serious: No
  Sender: FDA-Public Use
  Company Number: US-PFIZER INC-2021276647

PATIENT
  Age: 58 Year
  Sex: Female
  Weight: 70.31 kg

DRUGS (2)
  1. DESVENLAFAXINE SUCCINATE MONOHYDRATE [Suspect]
     Active Substance: DESVENLAFAXINE SUCCINATE
     Indication: MAJOR DEPRESSION
     Dosage: 50 MG, 1X/DAY
  2. PRISTIQ EXTENDED?RELEASE [Suspect]
     Active Substance: DESVENLAFAXINE SUCCINATE
     Indication: MAJOR DEPRESSION
     Dosage: 50 MG, 1X/DAY

REACTIONS (4)
  - Anger [Unknown]
  - Antidepressant discontinuation syndrome [Unknown]
  - Crying [Unknown]
  - Emotional disorder [Unknown]
